FAERS Safety Report 9204336 (Version 2)
Quarter: 2013Q3

REPORT INFORMATION
  Report Type: Report from Study
  Country: BR (occurrence: BR)
  Receive Date: 20130402
  Receipt Date: 20130910
  Transmission Date: 20140515
  Serious: Yes (Hospitalization, Other)
  Sender: FDA-Public Use
  Company Number: BR-ROCHE-1208813

PATIENT
  Sex: Female

DRUGS (4)
  1. XOLAIR [Suspect]
     Indication: ASTHMA
     Dosage: ONE APPLICATION
     Route: 058
     Dates: start: 201301
  2. AEROLIN [Concomitant]
  3. SERETIDE [Concomitant]
     Dosage: 50/250 UG
     Route: 065
  4. DEFLAZACORT [Concomitant]
     Route: 065

REACTIONS (3)
  - Asthma [Recovering/Resolving]
  - Pulmonary vascular disorder [Unknown]
  - Fatigue [Unknown]
